FAERS Safety Report 12517358 (Version 2)
Quarter: 2016Q3

REPORT INFORMATION
  Report Type: Spontaneous
  Country: US (occurrence: US)
  Receive Date: 20160630
  Receipt Date: 20160829
  Transmission Date: 20161109
  Serious: No
  Sender: FDA-Public Use
  Company Number: US-GLAXOSMITHKLINE-US2016088188

PATIENT
  Sex: Male
  Weight: 108 kg

DRUGS (1)
  1. TANZEUM [Suspect]
     Active Substance: ALBIGLUTIDE
     Indication: PRODUCT USED FOR UNKNOWN INDICATION
     Dosage: UNK
     Route: 058
     Dates: start: 201604, end: 20160608

REACTIONS (4)
  - Injection site reaction [Unknown]
  - Erythema [Unknown]
  - Skin warm [Unknown]
  - Skin reaction [Unknown]
